FAERS Safety Report 4590923-5 (Version None)
Quarter: 2005Q1

REPORT INFORMATION
  Report Type: 
  Country: None (occurrence: None)
  Receive Date: 20050225
  Receipt Date: 20050216
  Transmission Date: 20050727
  Serious: Yes (Hospitalization, Other)
  Sender: FDA-Public Use
  Company Number: US-JNJFOC-20041100020

PATIENT
  Sex: Female
  Weight: 76 kg

DRUGS (10)
  1. REMICADE [Suspect]
     Dosage: LAST DOSE
     Route: 042
  2. REMICADE [Suspect]
     Dosage: (3 WEEKS AGO)
     Route: 042
  3. REMICADE [Suspect]
     Indication: CROHN'S DISEASE
     Route: 042
  4. DEPO-PROVERA [Concomitant]
  5. PREDNISONE [Concomitant]
  6. IMURAN [Concomitant]
  7. PENTASA [Concomitant]
  8. PREVACID [Concomitant]
  9. LOVENOX [Concomitant]
  10. GABAPENTIN [Concomitant]

REACTIONS (7)
  - ABASIA [None]
  - ATROPHY [None]
  - BACK PAIN [None]
  - BONE DISORDER [None]
  - CEREBRAL ATROPHY [None]
  - INJURY [None]
  - SPINAL CORD DISORDER [None]
